FAERS Safety Report 6468928-9 (Version None)
Quarter: 2009Q4

REPORT INFORMATION
  Report Type: 
  Country: None (occurrence: None)
  Receive Date: 20091203
  Receipt Date: 20090513
  Transmission Date: 20100525
  Serious: Yes (Other)
  Sender: FDA-Public Use
  Company Number: US-ELI_LILLY_AND_COMPANY-US_0502113231

PATIENT
  Sex: Female

DRUGS (4)
  1. FORTEO [Suspect]
     Indication: OSTEOARTHRITIS
     Dosage: 20 UG, DAILY (1/D)
     Route: 058
     Dates: start: 20040701, end: 20050713
  2. FORTEO [Suspect]
  3. EVISTA [Suspect]
     Dosage: UNK, UNKNOWN
  4. ROFECOXIB [Concomitant]
     Dosage: UNK, UNKNOWN

REACTIONS (9)
  - ANXIETY [None]
  - BACK DISORDER [None]
  - BACK PAIN [None]
  - DISCOMFORT [None]
  - DRUG INEFFECTIVE [None]
  - FALL [None]
  - IMPAIRED HEALING [None]
  - MEDICAL DEVICE IMPLANTATION [None]
  - SPINAL LAMINECTOMY [None]
